FAERS Safety Report 7599895-2 (Version None)
Quarter: 2011Q3

REPORT INFORMATION
  Report Type: 
  Country: None (occurrence: None)
  Receive Date: 20110706
  Receipt Date: 20110706
  Transmission Date: 20111222
  Serious: Yes (Hospitalization)
  Sender: FDA-Public Use
  Company Number: None

PATIENT
  Sex: Female
  Weight: 71.4 kg

DRUGS (3)
  1. CYCLOPHOSPHAMIDE [Suspect]
     Dosage: 1086 MG
     Dates: end: 20110105
  2. DOXORUBICIN HYDROCHLORIDE [Suspect]
     Dosage: 109 MG
     Dates: end: 20110105
  3. DEXAMETHASONE [Suspect]
     Dosage: 10 MG
     Dates: end: 20110105

REACTIONS (6)
  - BRAIN NATRIURETIC PEPTIDE INCREASED [None]
  - COUGH [None]
  - FATIGUE [None]
  - OEDEMA PERIPHERAL [None]
  - CONDITION AGGRAVATED [None]
  - EJECTION FRACTION DECREASED [None]
